FAERS Safety Report 18268442 (Version 1)
Quarter: 2020Q3

REPORT INFORMATION
  Report Type: Spontaneous
  Country: SE (occurrence: SE)
  Receive Date: 20200915
  Receipt Date: 20200915
  Transmission Date: 20201103
  Serious: Yes (Other)
  Sender: FDA-Public Use
  Company Number: SE-SHIRE-SE202029115

PATIENT

DRUGS (1)
  1. ELVANSE [Suspect]
     Active Substance: LISDEXAMFETAMINE DIMESYLATE
     Indication: ATTENTION DEFICIT HYPERACTIVITY DISORDER
     Dosage: UNK
     Route: 065

REACTIONS (5)
  - Blepharospasm [Unknown]
  - Panic attack [Unknown]
  - Urethritis [Unknown]
  - Pyelonephritis [Unknown]
  - Dystonia [Unknown]

NARRATIVE: CASE EVENT DATE: 20160530
